FAERS Safety Report 23102727 (Version 1)
Quarter: 2023Q4

REPORT INFORMATION
  Report Type: Report from Study
  Country: CZ (occurrence: CZ)
  Receive Date: 20231025
  Receipt Date: 20231025
  Transmission Date: 20240109
  Serious: Yes (Other)
  Sender: FDA-Public Use
  Company Number: CZ-SAMSUNG BIOEPIS-SB-2023-28292

PATIENT
  Age: 37 Year
  Sex: Female

DRUGS (1)
  1. INFLIXIMAB [Suspect]
     Active Substance: INFLIXIMAB
     Indication: Crohn^s disease
     Dosage: UNKNOWN
     Route: 065

REACTIONS (3)
  - Hidradenitis [Not Recovered/Not Resolved]
  - Anogenital warts [Not Recovered/Not Resolved]
  - Squamous cell carcinoma of the vulva [Not Recovered/Not Resolved]

NARRATIVE: CASE EVENT DATE: 20230902
